FAERS Safety Report 8326895-7 (Version None)
Quarter: 2012Q2

REPORT INFORMATION
  Report Type: 
  Country: None (occurrence: None)
  Receive Date: 20120501
  Receipt Date: 20120416
  Transmission Date: 20120825
  Serious: Yes (Hospitalization, Other)
  Sender: FDA-Public Use
  Company Number: US-WATSON-2012-04139

PATIENT
  Age: 29 Year
  Sex: Female

DRUGS (1)
  1. BACLOFEN [Suspect]
     Indication: HYPOTONIC URINARY BLADDER
     Dosage: 20 MG, DAILY (2 X 10 MG)
     Route: 065

REACTIONS (17)
  - SALIVARY HYPERSECRETION [None]
  - ASTHENIA [None]
  - SOMNOLENCE [None]
  - FEAR [None]
  - ACCOMMODATION DISORDER [None]
  - RESTLESSNESS [None]
  - NAUSEA [None]
  - LOSS OF CONSCIOUSNESS [None]
  - VOMITING [None]
  - DYSPNOEA [None]
  - HYPOTONIA [None]
  - NEUROTOXICITY [None]
  - MUSCULOSKELETAL STIFFNESS [None]
  - HYPOAESTHESIA [None]
  - UNRESPONSIVE TO STIMULI [None]
  - TOXICITY TO VARIOUS AGENTS [None]
  - COMA [None]
